FAERS Safety Report 17591921 (Version 1)
Quarter: 2020Q1

REPORT INFORMATION
  Report Type: Spontaneous
  Country: GB (occurrence: GB)
  Receive Date: 20200327
  Receipt Date: 20200327
  Transmission Date: 20200409
  Serious: Yes (Hospitalization)
  Sender: FDA-Public Use
  Company Number: GB-SA-2020SA069380

PATIENT
  Age: 67 Year
  Sex: Male

DRUGS (22)
  1. IPRATROPIUM BROMIDE. [Concomitant]
     Active Substance: IPRATROPIUM BROMIDE
     Dosage: 500MICROGRAMS/2MLFOUR TIMES A DAY WHEN REQUIRED
  2. COLECALCIFEROL [Concomitant]
     Active Substance: CHOLECALCIFEROL
  3. LANSOPRAZOLE. [Concomitant]
     Active Substance: LANSOPRAZOLE
     Dosage: IN THE MORNING
  4. ALLOPURINOL. [Concomitant]
     Active Substance: ALLOPURINOL
     Dosage: AFTER FOOD
  5. THIAMINE. [Concomitant]
     Active Substance: THIAMINE
  6. ISOSORBIDE MONONITRATE. [Concomitant]
     Active Substance: ISOSORBIDE MONONITRATE
  7. CARBOCISTEINE [Concomitant]
     Active Substance: CARBOCYSTEINE
  8. QUININE SULFATE. [Concomitant]
     Active Substance: QUININE SULFATE
     Dosage: AT NIGHT
  9. VENTOLIN [Concomitant]
     Active Substance: ALBUTEROL SULFATE
     Route: 055
  10. TRELEGY ELLIPTA [Concomitant]
     Active Substance: FLUTICASONE FUROATE\UMECLIDINIUM BROMIDE\VILANTEROL TRIFENATATE
     Dosage: 92MICROGRAMS/DOSE / 55MICROGRAMS/DOSE / 22MICROGRAMS/DOSE DRY POWDER INHALER
     Route: 055
  11. APIXABAN [Suspect]
     Active Substance: APIXABAN
     Indication: ACUTE MYOCARDIAL INFARCTION
     Dosage: 10 MG, QD
  12. RAMIPRIL. [Concomitant]
     Active Substance: RAMIPRIL
  13. FUROSEMIDE. [Concomitant]
     Active Substance: FUROSEMIDE
     Dosage: IN THE MORNING
  14. LORAZEPAM. [Concomitant]
     Active Substance: LORAZEPAM
     Indication: DYSPNOEA
     Dosage: (MAXIMUM 4MG IN ANY 24HOUR PERIOD)
  15. TILDIEM LA [Concomitant]
     Active Substance: DILTIAZEM HYDROCHLORIDE
  16. MORPHINE [Concomitant]
     Active Substance: MORPHINE
  17. MORPHINE [Concomitant]
     Active Substance: MORPHINE
     Dosage: FOUR TIMES DAILY
  18. UNIPHYLLIN CONTINUS [Concomitant]
     Active Substance: THEOPHYLLINE ANHYDROUS
  19. GLYCERYL TRINITRATE [Concomitant]
     Active Substance: NITROGLYCERIN
     Dosage: 1-2 SPRAYS WHEN REQUIRED
  20. ATORVASTATIN [Concomitant]
     Active Substance: ATORVASTATIN
  21. SALBUTAMOL [Concomitant]
     Active Substance: ALBUTEROL
     Dosage: 2.5MG/2.5ML
     Route: 055
  22. CLOPIDOGREL BISULFATE. [Suspect]
     Active Substance: CLOPIDOGREL BISULFATE
     Indication: ACUTE MYOCARDIAL INFARCTION
     Dosage: 75 MG, QD

REACTIONS (2)
  - Epistaxis [Recovered/Resolved]
  - Dyspnoea [Unknown]
